FAERS Safety Report 25954560 (Version 1)
Quarter: 2025Q4

REPORT INFORMATION
  Report Type: Spontaneous
  Country: EU (occurrence: EU)
  Receive Date: 20251024
  Receipt Date: 20251024
  Transmission Date: 20260117
  Serious: Yes (Congenital Anomaly, Other)
  Sender: GLAXOSMITHKLINE
  Company Number: None

PATIENT
  Sex: Female
  Weight: 2.15 kg

DRUGS (9)
  1. LAMOTRIGINE [Suspect]
     Active Substance: LAMOTRIGINE
     Indication: Generalised tonic-clonic seizure
     Dosage: UNK (SLOWLY INCREASED; 1ST TRIMESTER: 400 MG/D (250-0-150), IN THE FURTHER COURSE INCREASE TO 1200 MG/D (400-350-450) AND ANOTHER INCREASE OF 50 MG/D WAS PLANNED IN GW 34  )
  2. PREGABALIN [Suspect]
     Active Substance: PREGABALIN
     Indication: Neuralgia
     Dosage: 150 MG
  3. PREGABALIN [Suspect]
     Active Substance: PREGABALIN
     Indication: Epicondylitis
  4. FOLIC ACID [Concomitant]
     Active Substance: FOLIC ACID
     Indication: Vitamin supplementation
     Dosage: UNK, QD
  5. PERTUSSIS VACCINE [Concomitant]
     Active Substance: PERTUSSIS VACCINE
     Indication: Immunisation
     Dosage: UNK
  6. TRAMADOL [Concomitant]
     Active Substance: TRAMADOL
     Indication: Neuralgia
     Dosage: 100 MG, PRN(~APPROXIMATELY 2-3X/MONTH )
  7. TRAMADOL [Concomitant]
     Active Substance: TRAMADOL
     Indication: Epicondylitis
  8. ACETAMINOPHEN [Concomitant]
     Active Substance: ACETAMINOPHEN
     Indication: Product used for unknown indication
     Dosage: 500 MG, PRN(MIN. 2X/WK)
  9. SUMATRIPTAN [Concomitant]
     Active Substance: SUMATRIPTAN
     Indication: Migraine
     Dosage: 100 MG, PRN

REACTIONS (4)
  - Pulmonary artery stenosis congenital [Recovered/Resolved]
  - Atrial septal defect [Recovered/Resolved]
  - Small for dates baby [Recovered/Resolved]
  - Foetal exposure during pregnancy [Unknown]

NARRATIVE: CASE EVENT DATE: 20240401
